FAERS Safety Report 18281548 (Version 2)
Quarter: 2020Q3

REPORT INFORMATION
  Report Type: Report from Study
  Country: MX (occurrence: MX)
  Receive Date: 20200918
  Receipt Date: 20200925
  Transmission Date: 20201103
  Serious: Yes (Other)
  Sender: FDA-Public Use
  Company Number: NVSC2020MX252539

PATIENT
  Age: 68 Year
  Sex: Female
  Weight: 65 kg

DRUGS (2)
  1. GALVUS MET [Suspect]
     Active Substance: METFORMIN HYDROCHLORIDE\VILDAGLIPTIN
     Indication: DIABETES MELLITUS
     Dosage: 1.5 DF, 1 IN THE MORNING AND ? AT NIGHT
     Route: 048
     Dates: start: 20200829
  2. GALVUS MET [Suspect]
     Active Substance: METFORMIN HYDROCHLORIDE\VILDAGLIPTIN
     Dosage: 1.5 DF, 1 IN THE MORNING AND ? AT NIGHT
     Route: 048
     Dates: start: 20200905

REACTIONS (2)
  - Wrong technique in product usage process [Unknown]
  - Gastrointestinal disorder [Unknown]

NARRATIVE: CASE EVENT DATE: 20200905
